FAERS Safety Report 8935301 (Version 1)
Quarter: 2012Q4

REPORT INFORMATION
  Report Type: 
  Country: IT (occurrence: IT)
  Receive Date: 20121129
  Receipt Date: 20121129
  Transmission Date: 20130627
  Serious: No
  Sender: FDA-Public Use
  Company Number: IT-GLAXOSMITHKLINE-B0658938A

PATIENT
  Age: 39 Year
  Sex: Female

DRUGS (2)
  1. TYVERB [Suspect]
     Indication: PRODUCT USED FOR UNKNOWN INDICATION
     Dates: start: 20090930, end: 20100228
  2. XELODA [Concomitant]

REACTIONS (2)
  - Toxicity to various agents [Recovered/Resolved]
  - Skin hyperpigmentation [Recovered/Resolved]
